FAERS Safety Report 23983601 (Version 1)
Quarter: 2024Q2

REPORT INFORMATION
  Report Type: Spontaneous
  Country: US (occurrence: US)
  Receive Date: 20240618
  Receipt Date: 20240618
  Transmission Date: 20240716
  Serious: Yes (Other)
  Sender: FDA-Public Use
  Company Number: US-STRIDES ARCOLAB LIMITED-2024SP006927

PATIENT
  Age: 2 Year
  Sex: Female

DRUGS (13)
  1. METHOTREXATE [Suspect]
     Active Substance: METHOTREXATE
     Indication: Acute myeloid leukaemia
     Dosage: UNK, WEEKLY (LOW DOSE) (SECOND INDUCTION)
     Route: 065
  2. METHOTREXATE [Suspect]
     Active Substance: METHOTREXATE
     Dosage: UNK, WEEKLY (LOW DOSE) (THIRD INDUCTION)
     Route: 065
  3. METHOTREXATE [Suspect]
     Active Substance: METHOTREXATE
     Dosage: UNK (WEEKLY, REINITIATED)
     Route: 065
  4. CYTARABINE\DAUNORUBICIN [Suspect]
     Active Substance: CYTARABINE\DAUNORUBICIN
     Indication: Acute myeloid leukaemia
     Dosage: UNK
     Route: 065
  5. PEG/L-ASPARAGINASE [Suspect]
     Active Substance: PEGASPARGASE
     Indication: Acute myeloid leukaemia
     Dosage: UNK, 2 TIMES A MONTH (SECOND INDUCTION)
     Route: 065
  6. PEG/L-ASPARAGINASE [Suspect]
     Active Substance: PEGASPARGASE
     Dosage: UNK, 2 TIMES A MONTH (REINITIATED)
     Route: 065
  7. DASATINIB [Suspect]
     Active Substance: DASATINIB
     Indication: Acute myeloid leukaemia
     Dosage: UNK (SECOND INDUCTION)
     Route: 048
  8. DASATINIB [Suspect]
     Active Substance: DASATINIB
     Dosage: UNK (THIRD INDUCTION)
     Route: 065
  9. DASATINIB [Suspect]
     Active Substance: DASATINIB
     Dosage: UNK, DOSE MAXIMISED
     Route: 065
  10. GEMTUZUMAB OZOGAMICIN [Concomitant]
     Active Substance: GEMTUZUMAB OZOGAMICIN
     Indication: Acute myeloid leukaemia
     Dosage: UNK
     Route: 065
  11. GEMTUZUMAB OZOGAMICIN [Concomitant]
     Active Substance: GEMTUZUMAB OZOGAMICIN
     Dosage: UNK, REINTIATED (THIRD INDUCTION)
     Route: 065
  12. CYTARABINE [Concomitant]
     Active Substance: CYTARABINE
     Indication: Acute myeloid leukaemia
     Dosage: UNK (SECOND INDUCTION)
     Route: 065
  13. CYTARABINE [Concomitant]
     Active Substance: CYTARABINE
     Dosage: UNK (THIRD INDUCTION)
     Route: 065

REACTIONS (2)
  - Drug ineffective [Unknown]
  - Acute myeloid leukaemia [Unknown]
